FAERS Safety Report 5164595-5 (Version None)
Quarter: 2006Q4

REPORT INFORMATION
  Report Type: 
  Country: None (occurrence: None)
  Receive Date: 20061205
  Receipt Date: 20060922
  Transmission Date: 20070319
  Serious: Yes (Death, Life-Threatening)
  Sender: FDA-Public Use
  Company Number: JP-MERCK-0609USA07206

PATIENT
  Age: 95 Year
  Sex: Female

DRUGS (4)
  1. PRIMAXIN [Suspect]
     Indication: PNEUMONIA
     Route: 042
     Dates: start: 20060907, end: 20060915
  2. DEXTROSE [Concomitant]
     Route: 065
  3. FUTHAN [Concomitant]
     Indication: DISSEMINATED INTRAVASCULAR COAGULATION
     Route: 042
     Dates: start: 20060907, end: 20060914
  4. OMEPRAL [Concomitant]
     Indication: OESOPHAGITIS
     Route: 042
     Dates: start: 20060831, end: 20060905

REACTIONS (9)
  - BLOOD CHLORIDE DECREASED [None]
  - DECREASED APPETITE [None]
  - GENERAL PHYSICAL HEALTH DETERIORATION [None]
  - HYPERKALAEMIA [None]
  - HYPOCALCAEMIA [None]
  - HYPONATRAEMIA [None]
  - ORAL INTAKE REDUCED [None]
  - PNEUMONIA [None]
  - THROMBOCYTOPENIA [None]
